FAERS Safety Report 4522629-2 (Version None)
Quarter: 2004Q4

REPORT INFORMATION
  Report Type: 
  Country: None (occurrence: None)
  Receive Date: 20041207
  Receipt Date: 20041119
  Transmission Date: 20050328
  Serious: Yes (Death, Hospitalization)
  Sender: FDA-Public Use
  Company Number: GBS041015677

PATIENT
  Age: 49 Year
  Sex: Male

DRUGS (8)
  1. XIGRIS [Suspect]
     Indication: SEPSIS
     Dosage: 24 UG/KG/HR
  2. ENOXAPARIN [Concomitant]
  3. NORADRENALINE [Concomitant]
  4. DOPEXAMINE [Concomitant]
  5. PROPOFOL [Concomitant]
  6. ALFENTANIL [Concomitant]
  7. ACTRAPID (INSULIN) [Concomitant]
  8. MEROPENEM [Concomitant]

REACTIONS (14)
  - ACUTE RESPIRATORY DISTRESS SYNDROME [None]
  - BONE DISORDER [None]
  - BRAIN DEATH [None]
  - BRAIN OEDEMA [None]
  - CEREBRAL HAEMORRHAGE [None]
  - HYPERGLYCAEMIA [None]
  - INJURY [None]
  - LOCAL SWELLING [None]
  - MULTI-ORGAN FAILURE [None]
  - PANCREATIC NECROSIS [None]
  - PAPILLOEDEMA [None]
  - PARANASAL SINUS HYPERSECRETION [None]
  - PROTHROMBIN TIME PROLONGED [None]
  - SUBARACHNOID HAEMORRHAGE [None]
